FAERS Safety Report 12465846 (Version 1)
Quarter: 2016Q2

REPORT INFORMATION
  Report Type: Other
  Country: PE (occurrence: PE)
  Receive Date: 20160614
  Receipt Date: 20160614
  Transmission Date: 20160815
  Serious: Yes (Other)
  Sender: FDA-Public Use
  Company Number: PE-B. BRAUN MEDICAL INC.-1053800

PATIENT
  Age: 36 Year
  Sex: Female

DRUGS (8)
  1. METRONIDAZOLE. [Suspect]
     Active Substance: METRONIDAZOLE
     Indication: SEPSIS
     Route: 042
  2. MEROPENEM. [Suspect]
     Active Substance: MEROPENEM
     Route: 042
  3. BEVACIZUMAB [Suspect]
     Active Substance: BEVACIZUMAB
  4. ANIDULAFUNGIN [Concomitant]
     Active Substance: ANIDULAFUNGIN
     Route: 042
  5. PACLITAXEL. [Suspect]
     Active Substance: PACLITAXEL
  6. CIPROFLOXACIN. [Suspect]
     Active Substance: CIPROFLOXACIN
  7. CARBOPLATIN. [Suspect]
     Active Substance: CARBOPLATIN
  8. TIGECYCLINE. [Suspect]
     Active Substance: TIGECYCLINE
     Route: 042

REACTIONS (3)
  - Endocarditis [None]
  - Systemic candida [None]
  - Cardiac valve vegetation [None]
